FAERS Safety Report 9785815 (Version 4)
Quarter: 2014Q2

REPORT INFORMATION
  Report Type: Spontaneous
  Country: FR (occurrence: FR)
  Receive Date: 20131227
  Receipt Date: 20140411
  Transmission Date: 20141212
  Serious: Yes (Hospitalization)
  Sender: FDA-Public Use
  Company Number: FR-PFIZER INC-2013365640

PATIENT
  Age: 80 Year
  Sex: Male

DRUGS (8)
  1. AMLOR [Suspect]
     Indication: HYPERTENSION
     Dosage: 10 MG, DAILY
     Route: 048
     Dates: start: 20131018, end: 20131101
  2. LASILIX [Suspect]
     Indication: HYPERTENSION
     Dosage: 125 MG, DAILY
  3. LASILIX [Suspect]
     Dosage: 40 MG, DAILY
     Route: 048
     Dates: start: 20131018, end: 20131101
  4. PREVISCAN [Concomitant]
     Indication: ATRIAL FIBRILLATION
     Dosage: 0.75 DF, DAILY
     Route: 048
     Dates: start: 2009, end: 20131018
  5. PREVISCAN [Concomitant]
     Dosage: UNK
     Dates: start: 20131024, end: 20131101
  6. LEXOMIL [Concomitant]
     Dosage: 0.25 DF, 1X/DAY, IN THE EVENING
     Dates: start: 20130826, end: 20131102
  7. AVODART [Concomitant]
     Dosage: 0.5 MG, DAILY
     Dates: start: 2009, end: 20131105
  8. PERMIXON [Concomitant]
     Dosage: 160 MG, 2X/DAY
     Dates: start: 2009, end: 20131105

REACTIONS (3)
  - Hypersensitivity vasculitis [Recovered/Resolved]
  - Renal failure acute [Recovered/Resolved]
  - Renal tubular disorder [Recovered/Resolved]
